FAERS Safety Report 7094776 (Version 7)
Quarter: 2018Q4

REPORT INFORMATION
  Report Type: Spontaneous
  Country: US (occurrence: US)
  Receive Date: 20090824
  Receipt Date: 20181130
  Transmission Date: 20190205
  Serious: Yes (Hospitalization, Other)
  Sender: FDA-Public Use
  Company Number: US-ALEXION-A200900646

PATIENT
  Age: 44 Year
  Sex: Female

DRUGS (4)
  1. SOLIRIS [Suspect]
     Active Substance: ECULIZUMAB
     Dosage: 900 MG, Q3W
     Route: 042
  2. WARFARIN [Concomitant]
     Active Substance: WARFARIN
     Dosage: 5 MG, MO,TU,WE,FR+SA
     Route: 048
  3. SOLIRIS [Suspect]
     Active Substance: ECULIZUMAB
     Indication: PAROXYSMAL NOCTURNAL HAEMOGLOBINURIA
     Dosage: UNK
     Route: 042
     Dates: start: 2006
  4. WARFARIN [Concomitant]
     Active Substance: WARFARIN
     Indication: PRODUCT USED FOR UNKNOWN INDICATION
     Dosage: 7.5 MG, TH+SU
     Route: 048

REACTIONS (11)
  - Gonococcal infection [Recovered/Resolved]
  - Hypotension [Unknown]
  - Haemolysis [Recovering/Resolving]
  - Pain [Unknown]
  - Fatigue [Unknown]
  - Skin laceration [Recovered/Resolved]
  - White blood cell count increased [Unknown]
  - Pyrexia [Unknown]
  - Injury [Unknown]
  - Sepsis [Recovered/Resolved]
  - Septic shock [Recovered/Resolved]

NARRATIVE: CASE EVENT DATE: 200908
